FAERS Safety Report 12674898 (Version 3)
Quarter: 2018Q2

REPORT INFORMATION
  Report Type: Report from Study
  Country: US (occurrence: US)
  Receive Date: 20160823
  Receipt Date: 20180409
  Transmission Date: 20180711
  Serious: Yes (Other)
  Sender: FDA-Public Use
  Company Number: US-ROCHE-1548883

PATIENT
  Age: 69 Year
  Sex: Female
  Weight: 42.91 kg

DRUGS (48)
  1. CYMBALTA [Concomitant]
     Active Substance: DULOXETINE HYDROCHLORIDE
  2. TOPROL XL [Concomitant]
     Active Substance: METOPROLOL SUCCINATE
     Dosage: AS NEEDED
     Route: 065
  3. NORVASC [Concomitant]
     Active Substance: AMLODIPINE BESYLATE
  4. LEVOCARNITINE. [Concomitant]
     Active Substance: LEVOCARNITINE
  5. CALCIUM CARBONATE. [Concomitant]
     Active Substance: CALCIUM CARBONATE
     Route: 048
  6. CELLCEPT [Suspect]
     Active Substance: MYCOPHENOLATE MOFETIL\MYCOPHENOLATE MOFETIL HYDROCHLORIDE
     Indication: MYALGIA
     Dosage: 13/AUG/2015,  1TAB DAILYX 1 WEEKTHEN 2 TABX1 1WK
     Route: 048
  7. PROVIGIL [Concomitant]
     Active Substance: MODAFINIL
  8. DOXYCYCLIN [Concomitant]
     Active Substance: DOXYCYCLINE
  9. TRIAMCINOLONE ACETONIDE. [Concomitant]
     Active Substance: TRIAMCINOLONE ACETONIDE
  10. INSULIN [Concomitant]
     Active Substance: INSULIN NOS
  11. DHEA [Concomitant]
     Active Substance: PRASTERONE
     Route: 048
  12. SYNTHROID [Concomitant]
     Active Substance: LEVOTHYROXINE SODIUM
     Route: 048
  13. ALLEGRA-D [Concomitant]
     Active Substance: FEXOFENADINE\PSEUDOEPHEDRINE
  14. NASONEX [Concomitant]
     Active Substance: MOMETASONE FUROATE
     Route: 045
  15. CREON [Concomitant]
     Active Substance: PANCRELIPASE AMYLASE\PANCRELIPASE LIPASE\PANCRELIPASE PROTEASE
  16. VITAMIN D3 [Concomitant]
     Active Substance: CHOLECALCIFEROL
  17. NUTROPIN AQ [Suspect]
     Active Substance: SOMATROPIN
     Indication: HYPOPITUITARISM
     Route: 058
  18. CELLCEPT [Suspect]
     Active Substance: MYCOPHENOLATE MOFETIL\MYCOPHENOLATE MOFETIL HYDROCHLORIDE
     Indication: MYOSITIS
  19. CELLCEPT [Suspect]
     Active Substance: MYCOPHENOLATE MOFETIL\MYCOPHENOLATE MOFETIL HYDROCHLORIDE
     Indication: CONNECTIVE TISSUE DISORDER
  20. DICYCLOMINE [Concomitant]
     Active Substance: DICYCLOMINE HYDROCHLORIDE
     Route: 065
  21. CYTOMEL [Concomitant]
     Active Substance: LIOTHYRONINE SODIUM
     Route: 048
  22. DDAVP [Concomitant]
     Active Substance: DESMOPRESSIN ACETATE
  23. ULTRAM [Concomitant]
     Active Substance: TRAMADOL HYDROCHLORIDE
     Route: 065
  24. LYRICA [Concomitant]
     Active Substance: PREGABALIN
  25. CELEBREX [Concomitant]
     Active Substance: CELECOXIB
  26. REGLAN [Concomitant]
     Active Substance: METOCLOPRAMIDE HYDROCHLORIDE
  27. PROMETRIUM (UNITED STATES) [Concomitant]
     Route: 065
  28. OMEGA 3 [Concomitant]
     Active Substance: OMEGA-3 FATTY ACIDS
  29. TRETINOIN. [Concomitant]
     Active Substance: TRETINOIN
  30. FISH OIL [Concomitant]
     Active Substance: FISH OIL
     Route: 048
  31. CELLCEPT [Suspect]
     Active Substance: MYCOPHENOLATE MOFETIL\MYCOPHENOLATE MOFETIL HYDROCHLORIDE
     Indication: POLYMYOSITIS
     Route: 048
  32. CORTEF [Concomitant]
     Active Substance: HYDROCORTISONE
     Dosage: 20 MG AM, 20 MG PM
     Route: 065
  33. FLORINEF ACETATE [Concomitant]
     Active Substance: FLUDROCORTISONE ACETATE
     Route: 065
  34. NITROGLYCERIN. [Concomitant]
     Active Substance: NITROGLYCERIN
  35. ULTRAVATE OINTMENT 0.05% [Concomitant]
  36. DEPO TESTOSTERONE [Concomitant]
     Active Substance: TESTOSTERONE
     Route: 065
  37. SULFACETAMIDE SODIUM. [Concomitant]
     Active Substance: SULFACETAMIDE SODIUM
     Route: 065
  38. LODINE [Concomitant]
     Active Substance: ETODOLAC
  39. VOLTAREN [Concomitant]
     Active Substance: DICLOFENAC SODIUM
     Route: 065
  40. ZETIA [Concomitant]
     Active Substance: EZETIMIBE
     Route: 065
  41. RECLAST [Concomitant]
     Active Substance: ZOLEDRONIC ACID
     Route: 042
     Dates: start: 200807
  42. PANCREASE (UNITED STATES) [Concomitant]
  43. FAMVIR (UNITED STATES) [Concomitant]
  44. PLAQUENIL [Concomitant]
     Active Substance: HYDROXYCHLOROQUINE SULFATE
  45. ESTRACE (UNITED STATES) [Concomitant]
     Route: 065
  46. RETIN-A MICRO [Concomitant]
     Active Substance: TRETINOIN
  47. KLOR-CON [Concomitant]
     Active Substance: POTASSIUM CHLORIDE
  48. PREVACID [Concomitant]
     Active Substance: LANSOPRAZOLE

REACTIONS (49)
  - Dizziness [Unknown]
  - Trichorrhexis [Unknown]
  - Blood urea nitrogen/creatinine ratio increased [Unknown]
  - Immunoglobulins decreased [Unknown]
  - Vitamin D deficiency [Unknown]
  - Monocyte count decreased [Unknown]
  - CD4 lymphocytes increased [Unknown]
  - Malabsorption [Unknown]
  - Abnormal loss of weight [Unknown]
  - Myalgia [Unknown]
  - Muscular weakness [Unknown]
  - CD8 lymphocytes increased [Unknown]
  - T-lymphocyte count decreased [Unknown]
  - Tri-iodothyronine increased [Unknown]
  - Alanine aminotransferase increased [Unknown]
  - Herpes simplex [Unknown]
  - Peroneal nerve palsy [Unknown]
  - Neck pain [Unknown]
  - Alopecia [Unknown]
  - Intentional product use issue [Unknown]
  - Malnutrition [Unknown]
  - Natural killer cell count decreased [Unknown]
  - Constipation [Unknown]
  - Insulin-like growth factor decreased [Not Recovered/Not Resolved]
  - Extra dose administered [Unknown]
  - Thyroid disorder [Unknown]
  - Blood zinc decreased [Unknown]
  - Eosinophil count decreased [Unknown]
  - Injection site discolouration [Recovered/Resolved]
  - Muscle disorder [Unknown]
  - Blood creatinine decreased [Unknown]
  - Gastrointestinal inflammation [Unknown]
  - Dyspnoea [Unknown]
  - Upper limb fracture [Unknown]
  - Visual impairment [Unknown]
  - Lymphocyte count decreased [Unknown]
  - Neutrophil count increased [Unknown]
  - CD4 lymphocytes decreased [Unknown]
  - Aspartate aminotransferase increased [Unknown]
  - Diarrhoea [Unknown]
  - Micturition urgency [Unknown]
  - Natural killer cell count increased [Unknown]
  - Arthralgia [Unknown]
  - Asthenia [Unknown]
  - Off label use [Unknown]
  - Cachexia [Unknown]
  - Protein total decreased [Unknown]
  - B-lymphocyte count decreased [Unknown]
  - Myositis [Unknown]

NARRATIVE: CASE EVENT DATE: 20150507
